FAERS Safety Report 9363218 (Version 1)
Quarter: 2013Q2

REPORT INFORMATION
  Report Type: Spontaneous
  Country: US (occurrence: US)
  Receive Date: 20130624
  Receipt Date: 20130624
  Transmission Date: 20140414
  Serious: No
  Sender: FDA-Public Use
  Company Number: US-009507513-1306USA006202

PATIENT
  Age: 35 Year
  Sex: Female

DRUGS (3)
  1. SYLATRON [Suspect]
     Indication: HEPATITIS C
     Dosage: UNK
     Dates: start: 2003
  2. REBETOL [Suspect]
     Indication: HEPATITIS C
     Dosage: UNK
     Route: 048
     Dates: start: 2003
  3. SYNTHROID [Concomitant]

REACTIONS (4)
  - Autoimmune thyroiditis [Unknown]
  - Rash [Unknown]
  - Blood count abnormal [Unknown]
  - Infertility [Unknown]
